FAERS Safety Report 8117014-0 (Version None)
Quarter: 2012Q1

REPORT INFORMATION
  Report Type: 
  Country: None (occurrence: None)
  Receive Date: 20120206
  Receipt Date: 20120202
  Transmission Date: 20120608
  Serious: Yes (Hospitalization)
  Sender: FDA-Public Use
  Company Number: US-VERTEX PHARMACEUTICALS INC.-AE-2012-001374

PATIENT
  Sex: Female
  Weight: 63.56 kg

DRUGS (3)
  1. RIBAVIRIN [Concomitant]
     Indication: HEPATITIS C
     Dates: start: 20120104, end: 20120122
  2. INCIVEK [Suspect]
     Indication: HEPATITIS C
     Dates: start: 20120104, end: 20120122
  3. PEGASYS [Concomitant]
     Indication: HEPATITIS C
     Route: 058
     Dates: start: 20120106, end: 20120122

REACTIONS (1)
  - CHEST DISCOMFORT [None]
